FAERS Safety Report 14994571 (Version 3)
Quarter: 2018Q3

REPORT INFORMATION
  Report Type: Report from Study
  Country: FR (occurrence: FR)
  Receive Date: 20180611
  Receipt Date: 20180711
  Transmission Date: 20181010
  Serious: Yes (Death, Hospitalization, Other)
  Sender: FDA-Public Use
  Company Number: FR-AUROBINDO-AUR-APL-2018-030353

PATIENT
  Age: 75 Year
  Sex: Female

DRUGS (4)
  1. RITUXIMAB. [Suspect]
     Active Substance: RITUXIMAB
     Indication: ANGIOCENTRIC LYMPHOMA
     Dosage: 2250 MG, UNK,CONCENTRATE FOR SOLUTION FOR INFUSION
     Route: 041
  2. CYCLOPHOSPHAMIDE. [Suspect]
     Active Substance: CYCLOPHOSPHAMIDE
     Indication: ANGIOCENTRIC LYMPHOMA
     Dosage: CVP THERAPY
     Route: 065
  3. VINCRISTINE [Suspect]
     Active Substance: VINCRISTINE
     Indication: ANGIOCENTRIC LYMPHOMA
     Dosage: UNK  (CVP THERAPY )
     Route: 065
  4. PREDNISONE. [Suspect]
     Active Substance: PREDNISONE
     Indication: ANGIOCENTRIC LYMPHOMA
     Dosage: CVP THERAPY
     Route: 065

REACTIONS (6)
  - Staphylococcal infection [Fatal]
  - Cytomegalovirus infection [Fatal]
  - Lung infection [Fatal]
  - Proteus infection [Fatal]
  - Aspergillus infection [Fatal]
  - Candida infection [Fatal]
